FAERS Safety Report 8552283-4 (Version None)
Quarter: 2012Q3

REPORT INFORMATION
  Report Type: 
  Country: None (occurrence: None)
  Receive Date: 20120723
  Receipt Date: 20120723
  Transmission Date: 20120928
  Serious: Yes (Disabling)
  Sender: FDA-Public Use
  Company Number: None

PATIENT
  Age: 2 Year
  Sex: Male
  Weight: 90.7194 kg

DRUGS (1)
  1. TETRACYCLINE [Suspect]

REACTIONS (2)
  - TOOTH DISCOLOURATION [None]
  - MATERNAL DRUGS AFFECTING FOETUS [None]
